FAERS Safety Report 8856446 (Version 3)
Quarter: 2013Q1

REPORT INFORMATION
  Report Type: Spontaneous
  Country: CA (occurrence: None)
  Receive Date: 20121018
  Receipt Date: 20121212
  Transmission Date: 20140127
  Serious: Yes (Death, Hospitalization, Other)
  Sender: FDA-Public Use
  Company Number: VAL_00920_2012

PATIENT
  Age: 4 Year
  Sex: Male

DRUGS (4)
  1. METOPROLOL [Suspect]
     Indication: PRODUCT USED FOR UNKNOWN INDICATION
     Dosage: (DF)
     Dates: end: 2009
  2. SANDOSTATIN LAR [Suspect]
     Indication: CARCINOID TUMOUR
     Route: 030
     Dates: start: 20050505
  3. VITALUX / 01586901/ UNKN0WN [Concomitant]
  4. DIGOXIN (UNKNOWN) [Concomitant]

REACTIONS (29)
  - Flushing [None]
  - Malaise [None]
  - Bradycardia [None]
  - Pallor [None]
  - Hyperhidrosis [None]
  - Nausea [None]
  - Vomiting [None]
  - Feeling hot [None]
  - Dizziness [None]
  - Asthenia [None]
  - Diarrhoea [None]
  - Arthralgia [None]
  - Blood pressure systolic increased [None]
  - Fatigue [None]
  - Heart rate irregular [None]
  - Fall [None]
  - Contusion [None]
  - Periorbital contusion [None]
  - Injection site mass [None]
  - Injection site scar [None]
  - Balance disorder [None]
  - Injection site pain [None]
  - Injection site haemorrhage [None]
  - Musculoskeletal stiffness [None]
  - Pain in extremity [None]
  - Wrong technique in drug usage process [None]
  - Local swelling [None]
  - Erythema [None]
  - Skin exfoliation [None]
